FAERS Safety Report 9159969 (Version 1)
Quarter: 2013Q1

REPORT INFORMATION
  Report Type: Spontaneous
  Country: DE (occurrence: None)
  Receive Date: 20130220
  Receipt Date: 20130220
  Transmission Date: 20140127
  Serious: Yes (Other)
  Sender: FDA-Public Use
  Company Number: DSM-2013-00204

PATIENT
  Age: 7 Decade
  Sex: 0

DRUGS (3)
  1. VOCADO (OLMESARTAN NEDOXOMIL, AMLODIPINE BESILATE)(TABLET)(OLMESARTAN, MEDOXOMIL, AMLODIPINE BESILATE)? [Suspect]
     Indication: PRODUCT USED FOR UNKNOWN INDICATION
     Dosage: 4 MONTHS AGO
     Route: 048
  2. TRIMIPRAMINE (TRIMIPRAMINE MALEATE)(TRIMIPRAMINE MALEATE) [Concomitant]
     Route: 048
  3. SERTRALINE (SERTRALINE)(SERTRALINE) [Concomitant]
     Route: 048

REACTIONS (1)
  - Extrapyramidal disorder [None]
